FAERS Safety Report 6576581-9 (Version None)
Quarter: 2010Q1

REPORT INFORMATION
  Report Type: 
  Country: None (occurrence: None)
  Receive Date: 20100210
  Receipt Date: 20100127
  Transmission Date: 20100710
  Serious: Yes (Other)
  Sender: FDA-Public Use
  Company Number: PHHY2010JP04389

PATIENT
  Age: 70 Year
  Sex: Male

DRUGS (3)
  1. RITALIN [Suspect]
     Indication: NARCOLEPSY
     Dosage: 30 MG DAILY
     Route: 048
  2. RITALIN [Suspect]
     Dosage: 20 MG DAILY
     Route: 048
  3. RITALIN [Suspect]
     Dosage: 10 MG DAILY
     Route: 048

REACTIONS (4)
  - CEREBRAL INFARCTION [None]
  - DEPRESSED LEVEL OF CONSCIOUSNESS [None]
  - ROAD TRAFFIC ACCIDENT [None]
  - VASCULAR RUPTURE [None]
